FAERS Safety Report 9179465 (Version 1)
Quarter: 2012Q4

REPORT INFORMATION
  Report Type: 
  Country: US (occurrence: US)
  Receive Date: 20121029
  Receipt Date: 20121029
  Transmission Date: 20130627
  Serious: No
  Sender: FDA-Public Use
  Company Number: US-AMGEN-USASP2012055807

PATIENT
  Age: 62 Year
  Sex: Female

DRUGS (9)
  1. ENBREL [Suspect]
     Indication: PRODUCT USED FOR UNKNOWN INDICATION
     Dosage: 50 mg, qwk
     Route: 058
  2. LEUCOVORIN                         /00566701/ [Concomitant]
     Dosage: UNK mg, UNK
  3. METHOTREXATE [Concomitant]
     Dosage: UNK mg, UNK
  4. VITAMIN E                          /00110501/ [Concomitant]
     Dosage: UNK unit, UNK
  5. LEVOTHYROXIN [Concomitant]
     Dosage: 1000 mcg, UNK
  6. CALCIUM CITRATE [Concomitant]
     Dosage: UNK mg, UNK
  7. FISH OIL [Concomitant]
     Dosage: UNK
  8. MULTIVITAMIN                       /00097801/ [Concomitant]
     Dosage: UNK
  9. FOLIC ACID [Concomitant]
     Dosage: UNK mg, UNK

REACTIONS (1)
  - Mouth ulceration [Unknown]
